FAERS Safety Report 10481854 (Version 1)
Quarter: 2014Q3

REPORT INFORMATION
  Report Type: Spontaneous
  Country: GB (occurrence: GB)
  Receive Date: 20140929
  Receipt Date: 20140929
  Transmission Date: 20150326
  Serious: Yes (Life-Threatening)
  Sender: FDA-Public Use
  Company Number: PHHY2014GB124799

PATIENT
  Age: 73 Year
  Sex: Female
  Weight: 55.91 kg

DRUGS (25)
  1. ASPIRIN. [Concomitant]
     Active Substance: ASPIRIN
     Dates: start: 20140604, end: 20140825
  2. IBUPROFEN. [Concomitant]
     Active Substance: IBUPROFEN
     Dates: start: 20140604, end: 20140822
  3. LEVOTHYROXINE [Concomitant]
     Active Substance: LEVOTHYROXINE
     Dates: start: 20140506, end: 20140730
  4. QUININE [Concomitant]
     Active Substance: QUININE
     Dates: start: 20140506, end: 20140730
  5. OMEPRAZOLE. [Concomitant]
     Active Substance: OMEPRAZOLE
     Dates: start: 20140506, end: 20140730
  6. UNIPHYLLIN [Concomitant]
     Active Substance: THEOPHYLLINE
     Dates: start: 20140604, end: 20140702
  7. FYBOGEL [Concomitant]
     Active Substance: PLANTAGO OVATA SEED
     Dates: start: 20140506, end: 20140730
  8. COCODAMOL [Suspect]
     Active Substance: ACETAMINOPHEN\CODEINE PHOSPHATE
     Dates: start: 20140704
  9. ACIDO FOLICO//FOLIC ACID [Concomitant]
     Dates: start: 20140506, end: 20140730
  10. GABAPENTIN. [Concomitant]
     Active Substance: GABAPENTIN
     Dates: start: 20140506, end: 20140730
  11. HYPROMELLOSE [Concomitant]
     Active Substance: HYPROMELLOSES
     Dates: start: 20140506, end: 20140828
  12. NITROFURANTOIN. [Concomitant]
     Active Substance: NITROFURANTOIN
     Dates: start: 20140716, end: 20140717
  13. ORAMORPH SR SUSTAINED RELEASE [Concomitant]
     Active Substance: MORPHINE SULFATE
     Dates: start: 20140624, end: 20140825
  14. ACETAMINOPHEN. [Concomitant]
     Active Substance: ACETAMINOPHEN
     Dates: start: 20140604, end: 20140822
  15. UNIPHYLLIN [Concomitant]
     Active Substance: THEOPHYLLINE
     Dates: start: 20140728, end: 20140825
  16. GLYCERYL TRINITRATE [Concomitant]
     Active Substance: NITROGLYCERIN
     Dates: start: 20140604, end: 20140702
  17. MONTELUKAST [Concomitant]
     Active Substance: MONTELUKAST SODIUM
     Dates: start: 20140604, end: 20140730
  18. SERETIDE [Concomitant]
     Active Substance: FLUTICASONE FUROATE\SALMETEROL XINAFOATE
     Dates: start: 20140506, end: 20140730
  19. TILDIEM [Concomitant]
     Active Substance: DILTIAZEM HYDROCHLORIDE
     Dates: start: 20140604, end: 20140702
  20. AMITRIPTYLINE HCL CF [Concomitant]
     Dates: start: 20140506, end: 20140730
  21. FUROSEMIDE. [Concomitant]
     Active Substance: FUROSEMIDE
     Dates: start: 20140704, end: 20140829
  22. GLYCERYL TRINITRATE [Concomitant]
     Active Substance: NITROGLYCERIN
     Dates: start: 20140728, end: 20140825
  23. CALCICHEW D3 [Concomitant]
     Active Substance: CALCIUM\CHOLECALCIFEROL
     Dates: start: 20140506, end: 20140730
  24. SALAMOL//SALBUTAMOL SULFATE [Concomitant]
     Dates: start: 20140506, end: 20140730
  25. TILDIEM [Concomitant]
     Active Substance: DILTIAZEM HYDROCHLORIDE
     Dates: start: 20140728, end: 20140825

REACTIONS (2)
  - Constipation [Recovering/Resolving]
  - Intestinal perforation [Recovering/Resolving]

NARRATIVE: CASE EVENT DATE: 20140817
